FAERS Safety Report 17274279 (Version 1)
Quarter: 2020Q1

REPORT INFORMATION
  Report Type: Report from Study
  Country: US (occurrence: US)
  Receive Date: 20200115
  Receipt Date: 20200115
  Transmission Date: 20200409
  Serious: Yes (Hospitalization, Other)
  Sender: FDA-Public Use
  Company Number: US-TAIHO ONCOLOGY  INC-EU-2019-03448

PATIENT
  Age: 65 Year
  Sex: Male

DRUGS (15)
  1. LONSURF [Suspect]
     Active Substance: TIPIRACIL HYDROCHLORIDE\TRIFLURIDINE
     Indication: COLON CANCER
     Dosage: CYCLE 1 INTERRUPTED ON AN UNKNOWN DATE FOR THE LAST 2 DAYS OF THE CYCLE. ?CYCLE 2 WILL BE RESTARTED
     Route: 048
     Dates: start: 20191017
  2. TYLENOL WITH CODEINE [Concomitant]
     Active Substance: ACETAMINOPHEN\CODEINE PHOSPHATE
     Dosage: NI
  3. LASIX [Concomitant]
     Active Substance: FUROSEMIDE
  4. GLYBURIDE. [Concomitant]
     Active Substance: GLYBURIDE
     Dosage: NI
  5. ONDANSETRON [Concomitant]
     Active Substance: ONDANSETRON
     Dosage: NI
  6. GLYBURIDE/METFORMIN [Concomitant]
     Active Substance: GLYBURIDE\METFORMIN
     Dosage: NI
  7. MULTIPLE VIT [Concomitant]
  8. FLUTICASONE. [Concomitant]
     Active Substance: FLUTICASONE
     Dosage: NI
  9. SUDAFED [Concomitant]
     Active Substance: PSEUDOEPHEDRINE HYDROCHLORIDE
     Dosage: NI
  10. LONSURF [Suspect]
     Active Substance: TIPIRACIL HYDROCHLORIDE\TRIFLURIDINE
     Dosage: CURRENT CYCLE  UNKNOWN.
     Route: 048
     Dates: start: 2019
  11. TYLENOL [Concomitant]
     Active Substance: ACETAMINOPHEN
     Dosage: NI
  12. LONSURF [Suspect]
     Active Substance: TIPIRACIL HYDROCHLORIDE\TRIFLURIDINE
     Dosage: 3 TABLETS?CYCLE UNKNOWN
     Route: 048
     Dates: start: 20191212
  13. PRAVASTATIN. [Concomitant]
     Active Substance: PRAVASTATIN
     Dosage: NI
  14. PROCHLORPERAZINE. [Concomitant]
     Active Substance: PROCHLORPERAZINE
     Dosage: NI
  15. APAP/CODEINE [Concomitant]
     Active Substance: ACETAMINOPHEN\CODEINE PHOSPHATE
     Dosage: NI

REACTIONS (14)
  - Fatigue [Unknown]
  - Alopecia [Not Recovered/Not Resolved]
  - Alopecia [Not Recovered/Not Resolved]
  - Onychoclasis [Not Recovered/Not Resolved]
  - White blood cell count decreased [Not Recovered/Not Resolved]
  - Abdominal pain [Not Recovered/Not Resolved]
  - Haemoglobin decreased [Not Recovered/Not Resolved]
  - Gastrointestinal cancer metastatic [Not Recovered/Not Resolved]
  - Weight decreased [Unknown]
  - Renal impairment [Unknown]
  - Diarrhoea [Recovering/Resolving]
  - Eructation [Not Recovered/Not Resolved]
  - Decreased appetite [Not Recovered/Not Resolved]
  - Platelet count decreased [Not Recovered/Not Resolved]

NARRATIVE: CASE EVENT DATE: 2019
